FAERS Safety Report 5481028-X (Version None)
Quarter: 2007Q4

REPORT INFORMATION
  Report Type: 
  Country: None (occurrence: None)
  Receive Date: 20071009
  Receipt Date: 20070927
  Transmission Date: 20080405
  Serious: Yes (Other)
  Sender: FDA-Public Use
  Company Number: US-PFIZER INC-2007081333

PATIENT
  Sex: Female
  Weight: 72.727 kg

DRUGS (6)
  1. LYRICA [Suspect]
     Indication: NEURALGIA
  2. THYROID TAB [Concomitant]
  3. LASIX [Concomitant]
  4. PREDNISONE [Concomitant]
  5. INDERAL LA [Concomitant]
  6. METFORMIN HCL [Concomitant]
     Indication: DIABETES MELLITUS

REACTIONS (3)
  - CONVULSION [None]
  - PAIN [None]
  - SOMNOLENCE [None]
